FAERS Safety Report 6382836-3 (Version None)
Quarter: 2009Q3

REPORT INFORMATION
  Report Type: 
  Country: None (occurrence: None)
  Receive Date: 20090928
  Receipt Date: 20090928
  Transmission Date: 20100115
  Serious: Yes (Hospitalization)
  Sender: FDA-Public Use
  Company Number: None

PATIENT
  Sex: Male

DRUGS (1)
  1. APOKYN [Suspect]
     Indication: PARKINSON'S DISEASE
     Dosage: (0.45 ML)
     Dates: end: 20090101

REACTIONS (4)
  - DEHYDRATION [None]
  - MALAISE [None]
  - VIRAL INFECTION [None]
  - VOMITING [None]
